FAERS Safety Report 25845296 (Version 1)
Quarter: 2025Q3

REPORT INFORMATION
  Report Type: Spontaneous
  Country: GB (occurrence: GB)
  Receive Date: 20250925
  Receipt Date: 20250925
  Transmission Date: 20251021
  Serious: Yes (Death, Other)
  Sender: ROCHE
  Company Number: None

PATIENT
  Age: 71 Year
  Sex: Female
  Weight: 61 kg

DRUGS (1)
  1. GLOFITAMAB [Suspect]
     Active Substance: GLOFITAMAB
     Indication: Diffuse large B-cell lymphoma
     Route: 065
     Dates: start: 20250529, end: 20250801

REACTIONS (3)
  - Pneumonia [Unknown]
  - Pyrexia [Unknown]
  - Vanishing bile duct syndrome [Fatal]

NARRATIVE: CASE EVENT DATE: 20250817
